FAERS Safety Report 8325131-5 (Version None)
Quarter: 2012Q2

REPORT INFORMATION
  Report Type: 
  Country: None (occurrence: None)
  Receive Date: 20120501
  Receipt Date: 20120319
  Transmission Date: 20120825
  Serious: No
  Sender: FDA-Public Use
  Company Number: US-ABBOTT-12P-163-0917507-00

PATIENT
  Sex: Female
  Weight: 52.21 kg

DRUGS (9)
  1. CREON [Suspect]
     Indication: PANCREATIC OPERATION
     Dosage: 12 CAPSULES, 4 CAPSULES WITH MEALS
     Route: 048
  2. SLOW FE [Concomitant]
     Indication: MINERAL SUPPLEMENTATION
  3. GLUCOTROL [Concomitant]
     Indication: DIABETES MELLITUS
  4. METFORMIN HCL [Concomitant]
     Indication: DIABETES MELLITUS
  5. CREON [Suspect]
     Indication: PANCREATIC CARCINOMA
  6. LABETALOL HCL [Concomitant]
     Indication: HYPERTENSION
  7. AMLODIPINE [Concomitant]
     Indication: PRODUCT USED FOR UNKNOWN INDICATION
  8. SIMVASTATIN [Concomitant]
     Indication: PRODUCT USED FOR UNKNOWN INDICATION
  9. LOSARTAN POTASSIUM [Concomitant]
     Indication: HYPERTENSION

REACTIONS (4)
  - FREQUENT BOWEL MOVEMENTS [None]
  - DYSPEPSIA [None]
  - DIZZINESS [None]
  - FLATULENCE [None]
